FAERS Safety Report 14133785 (Version 3)
Quarter: 2019Q1

REPORT INFORMATION
  Report Type: Spontaneous
  Country: US (occurrence: US)
  Receive Date: 20171027
  Receipt Date: 20190116
  Transmission Date: 20190417
  Serious: No
  Sender: FDA-Public Use
  Company Number: US-PFIZER INC-2017462952

PATIENT
  Age: 40 Year
  Sex: Male
  Weight: 81.1 kg

DRUGS (4)
  1. NEURONTIN [Suspect]
     Active Substance: GABAPENTIN
     Indication: PARAESTHESIA
     Dosage: 300 MG, THREE TIMES A DAY
     Route: 048
  2. NEURONTIN [Suspect]
     Active Substance: GABAPENTIN
     Indication: SEIZURE
     Dosage: 300 MG, 1X/DAY
     Route: 048
     Dates: start: 20170731, end: 20170731
  3. IBUPROFEN. [Concomitant]
     Active Substance: IBUPROFEN
     Dosage: UNK
  4. NEURONTIN [Suspect]
     Active Substance: GABAPENTIN
     Indication: HYPOAESTHESIA
     Dosage: 300 MG, TWICE A DAY
     Route: 048

REACTIONS (5)
  - Paraesthesia [Recovered/Resolved]
  - Drug hypersensitivity [Unknown]
  - Hypoaesthesia [Recovered/Resolved]
  - Condition aggravated [Recovered/Resolved]
  - Vision blurred [Recovered/Resolved]

NARRATIVE: CASE EVENT DATE: 20170731
